FAERS Safety Report 17205740 (Version 1)
Quarter: 2019Q4

REPORT INFORMATION
  Report Type: Spontaneous
  Country: US (occurrence: US)
  Receive Date: 20191204
  Receipt Date: 20191204
  Transmission Date: 20200122
  Serious: Yes (Hospitalization)
  Sender: FDA-Public Use
  Company Number: None

PATIENT

DRUGS (1)
  1. PRIVIGEN [Suspect]
     Active Substance: HUMAN IMMUNOGLOBULIN G
     Indication: MYASTHENIA GRAVIS
     Dosage: ?          QUANTITY:10 % PERCENT;OTHER FREQUENCY:EVERY 4 WEEKS;?
     Route: 042

REACTIONS (3)
  - Dyspnoea [None]
  - Feeling hot [None]
  - Sensation of foreign body [None]

NARRATIVE: CASE EVENT DATE: 20191125
